FAERS Safety Report 9944613 (Version 1)
Quarter: 2014Q1

REPORT INFORMATION
  Report Type: Report from Study
  Country: US (occurrence: US)
  Receive Date: 20140303
  Receipt Date: 20140303
  Transmission Date: 20141002
  Serious: No
  Sender: FDA-Public Use
  Company Number: US-ABBVIE-13P-163-1050325-00

PATIENT
  Age: 28 Year
  Sex: Female
  Weight: 59.02 kg

DRUGS (3)
  1. HUMIRA [Suspect]
     Indication: CROHN^S DISEASE
     Dates: start: 201207, end: 201301
  2. HUMIRA [Suspect]
     Dates: start: 201302, end: 201302
  3. 6-MP [Concomitant]
     Indication: CROHN^S DISEASE
     Dates: start: 201109

REACTIONS (2)
  - Cystitis [Unknown]
  - Cystitis [Recovered/Resolved]
